FAERS Safety Report 4559195-1 (Version None)
Quarter: 2005Q1

REPORT INFORMATION
  Report Type: 
  Country: None (occurrence: None)
  Receive Date: 20050124
  Receipt Date: 20050111
  Transmission Date: 20050727
  Serious: Yes (Other)
  Sender: FDA-Public Use
  Company Number: GB-JNJFOC-20050102386

PATIENT
  Age: 37 Year
  Sex: Male

DRUGS (4)
  1. RISPERDAL [Suspect]
     Indication: ANXIETY
     Route: 049
  2. PAROXETINE HCL [Concomitant]
     Indication: DEPRESSION
     Route: 049
  3. BUSPIRONE [Concomitant]
     Indication: ANXIETY
     Route: 049
  4. DIAZEPAM [Concomitant]

REACTIONS (1)
  - PSORIASIS [None]
